FAERS Safety Report 8395686-3 (Version None)
Quarter: 2012Q2

REPORT INFORMATION
  Report Type: 
  Country: None (occurrence: None)
  Receive Date: 20120530
  Receipt Date: 20120224
  Transmission Date: 20120825
  Serious: No
  Sender: FDA-Public Use
  Company Number: US-GLAXOSMITHKLINE-A0967390A

PATIENT
  Age: 24 Year
  Sex: Female

DRUGS (4)
  1. ADVAIR DISKUS 100/50 [Concomitant]
  2. PROZAC [Concomitant]
  3. VENTOLIN [Suspect]
     Indication: ASTHMA EXERCISE INDUCED
     Dosage: 2PUFF UNKNOWN
     Route: 055
     Dates: start: 20110101
  4. ADDERALL 5 [Concomitant]

REACTIONS (4)
  - DRUG INEFFECTIVE [None]
  - CHEST DISCOMFORT [None]
  - DYSPNOEA EXERTIONAL [None]
  - PRODUCT QUALITY ISSUE [None]
